FAERS Safety Report 9015976 (Version 1)
Quarter: 2013Q1

REPORT INFORMATION
  Report Type: Spontaneous
  Country: BR (occurrence: BR)
  Receive Date: 20130116
  Receipt Date: 20130116
  Transmission Date: 20140127
  Serious: Yes (Hospitalization, Other)
  Sender: FDA-Public Use
  Company Number: PHHY2013BR002484

PATIENT
  Age: 66 Year
  Sex: Female

DRUGS (8)
  1. HIGROTON [Suspect]
     Indication: DIURETIC THERAPY
     Dosage: 1 DF, DAILY
     Route: 048
  2. ESTRADOT [Suspect]
     Indication: HORMONE LEVEL ABNORMAL
     Dosage: 2 PATCHES (100 MCG) DAILY (CHANGING THE PATCHES AT MONDAYS AND THURSDAYS))
     Route: 062
  3. ESTRADOT [Suspect]
     Dosage: 2 PATCHES (50 MCG) (CHANGING THE PATCHES AT WEDNESDAY AND SATURDAY)
     Route: 062
     Dates: end: 2012
  4. ESTRADOT [Suspect]
     Dosage: 2 PATCHES (50 MCG) (CHANGING THE PATCHES AT WEDNESDAY AND SATURDAY)
     Route: 062
  5. MICARDIS HCT [Suspect]
     Indication: HYPERTENSION
     Dosage: 1 DF,(12.5 HCT/40 MG TELMI)
  6. MICARDIS HCT [Suspect]
     Dosage: 1 DF,(12.5 HCT/80 MG TELMI)
  7. DUPHASTON [Suspect]
  8. ARTROLIVE [Suspect]

REACTIONS (7)
  - Hypertension [Recovered/Resolved]
  - Lipoma of breast [Recovered/Resolved]
  - Depression [Recovered/Resolved]
  - Crying [Recovered/Resolved]
  - Insomnia [Recovered/Resolved]
  - Menopausal symptoms [Recovered/Resolved]
  - Incorrect dose administered [Unknown]
